FAERS Safety Report 7451908-4 (Version None)
Quarter: 2011Q2

REPORT INFORMATION
  Report Type: 
  Country: None (occurrence: None)
  Receive Date: 20110502
  Receipt Date: 20110420
  Transmission Date: 20111010
  Serious: Yes (Life-Threatening)
  Sender: FDA-Public Use
  Company Number: ZA-MERCK-1104USA03959

PATIENT
  Age: 52 Year
  Sex: Female

DRUGS (2)
  1. ELTROXIN [Concomitant]
     Indication: THYROID DISORDER
     Route: 065
  2. VYTORIN [Suspect]
     Indication: BLOOD CHOLESTEROL DECREASED
     Route: 048
     Dates: start: 20110101, end: 20110331

REACTIONS (1)
  - GASTRIC DISORDER [None]
